FAERS Safety Report 23767775 (Version 2)
Quarter: 2024Q2

REPORT INFORMATION
  Report Type: Spontaneous
  Country: CH (occurrence: CH)
  Receive Date: 20240422
  Receipt Date: 20240430
  Transmission Date: 20240716
  Serious: Yes (Hospitalization, Other)
  Sender: FDA-Public Use
  Company Number: None

PATIENT
  Age: 51 Year
  Sex: Female

DRUGS (5)
  1. VOTRIENT [Suspect]
     Active Substance: PAZOPANIB HYDROCHLORIDE
     Indication: Fibrosarcoma metastatic
     Dosage: 800 MG, QD (IN THE EVENING)
     Route: 048
     Dates: start: 20240308, end: 20240320
  2. VOTRIENT [Suspect]
     Active Substance: PAZOPANIB HYDROCHLORIDE
     Indication: Myxofibrosarcoma
  3. OPDIVO [Suspect]
     Active Substance: NIVOLUMAB
     Indication: Fibrosarcoma metastatic
     Dosage: 3 MG/KG, Q2W
     Route: 042
     Dates: start: 20240308, end: 20240308
  4. NIVOLUMAB [Suspect]
     Active Substance: NIVOLUMAB
     Indication: Myxofibrosarcoma
     Dosage: 1 DOSAGE FORM (IN TOTAL)
     Route: 042
     Dates: start: 20240308, end: 20240308
  5. ACETAMINOPHEN [Concomitant]
     Active Substance: ACETAMINOPHEN
     Indication: Product used for unknown indication
     Dosage: UNK, PRN (AS NECESSARY)
     Route: 065

REACTIONS (8)
  - Rash maculo-papular [Recovering/Resolving]
  - Face oedema [Unknown]
  - General physical health deterioration [Recovering/Resolving]
  - Liver function test increased [Not Recovered/Not Resolved]
  - Thrombocytopenia [Recovered/Resolved]
  - Pyrexia [Not Recovered/Not Resolved]
  - Diarrhoea [Recovered/Resolved]
  - Rash [Recovered/Resolved]

NARRATIVE: CASE EVENT DATE: 20240316
